FAERS Safety Report 16936458 (Version 1)
Quarter: 2019Q4

REPORT INFORMATION
  Report Type: Spontaneous
  Country: US (occurrence: US)
  Receive Date: 20190828
  Receipt Date: 20190828
  Transmission Date: 20200122
  Serious: Yes (Other)
  Sender: FDA-Public Use
  Company Number: None

PATIENT
  Age: 20 Year
  Sex: Male
  Weight: 51.7 kg

DRUGS (3)
  1. CLOBAZAM. [Concomitant]
     Active Substance: CLOBAZAM
  2. EPIDIOLEX [Concomitant]
     Active Substance: CANNABIDIOL
  3. LAMOTRIGINE. [Suspect]
     Active Substance: LAMOTRIGINE
     Indication: EPILEPSY
     Route: 048
     Dates: start: 2016

REACTIONS (4)
  - Tonic clonic movements [None]
  - Mastication disorder [None]
  - Seizure [None]
  - Lennox-Gastaut syndrome [None]

NARRATIVE: CASE EVENT DATE: 20190811
